FAERS Safety Report 8019477-8 (Version None)
Quarter: 2012Q1

REPORT INFORMATION
  Report Type: 
  Country: None (occurrence: None)
  Receive Date: 20120103
  Receipt Date: 20111229
  Transmission Date: 20120608
  Serious: Yes (Other)
  Sender: FDA-Public Use
  Company Number: PHHY2011CA111674

PATIENT
  Sex: Female

DRUGS (7)
  1. ATENOLOL [Concomitant]
     Dosage: 25 MG,
  2. CALCIUM WITH VITAMIN D [Concomitant]
     Dosage: UNK UKN, UNK
  3. ASPIRIN [Concomitant]
     Dosage: 80 MG,
  4. ZOLEDRONOC ACID [Suspect]
     Indication: OSTEOPOROSIS
     Dosage: 5 MG/100 ML
     Route: 042
     Dates: start: 20100113
  5. LIPITOR [Concomitant]
     Dosage: 20 MG,
  6. GALANTAMINE HYDROBROMIDE [Concomitant]
     Dosage: UNK UKN, UNK
  7. ZOLEDRONOC ACID [Suspect]
     Dosage: 5 MG/100 ML
     Route: 042
     Dates: start: 20110318

REACTIONS (4)
  - PURULENCE [None]
  - OSTEONECROSIS OF JAW [None]
  - SWELLING [None]
  - ABSCESS JAW [None]
